FAERS Safety Report 20832738 (Version 1)
Quarter: 2022Q2

REPORT INFORMATION
  Report Type: Spontaneous
  Country: JP (occurrence: JP)
  Receive Date: 20220516
  Receipt Date: 20220516
  Transmission Date: 20220721
  Serious: Yes (Hospitalization, Other)
  Sender: FDA-Public Use
  Company Number: JP-AMNEAL PHARMACEUTICALS-2022-AMRX-01353

PATIENT
  Sex: Female
  Weight: 50.6 kg

DRUGS (11)
  1. WARFARIN SODIUM [Interacting]
     Active Substance: WARFARIN SODIUM
     Indication: Haemorrhage prophylaxis
     Dosage: 1 MILLIGRAM, DAILY
     Route: 065
     Dates: end: 201903
  2. WARFARIN SODIUM [Interacting]
     Active Substance: WARFARIN SODIUM
     Dosage: 0.5 MILLIGRAM, DAILY
     Route: 065
     Dates: start: 201903, end: 201910
  3. WARFARIN SODIUM [Interacting]
     Active Substance: WARFARIN SODIUM
     Dosage: 1 MILLIGRAM, DAILY
     Route: 065
     Dates: start: 201910
  4. TOLVAPTAN [Interacting]
     Active Substance: TOLVAPTAN
     Indication: Cardiac failure congestive
     Dosage: 7.5 MILLIGRAM, DAILY
     Route: 065
     Dates: end: 201901
  5. TOLVAPTAN [Interacting]
     Active Substance: TOLVAPTAN
     Dosage: 15 MILLIGRAM, DAILY
     Route: 065
     Dates: start: 201901, end: 201910
  6. TOLVAPTAN [Interacting]
     Active Substance: TOLVAPTAN
     Dosage: 7.5 MILLIGRAM, DAILY
     Route: 065
     Dates: start: 201910
  7. CARPERITIDE [Concomitant]
     Active Substance: CARPERITIDE
     Indication: Cardiac failure congestive
     Dosage: 0.0125 UG/MIN/KG
     Route: 042
     Dates: start: 201901
  8. FUROSEMIDE [Concomitant]
     Active Substance: FUROSEMIDE
     Indication: Cardiac failure congestive
     Dosage: 40 MILLIGRAM, DAILY
     Route: 042
     Dates: start: 201901
  9. SPIRONOLACTONE [Concomitant]
     Active Substance: SPIRONOLACTONE
     Indication: Cardiac failure congestive
     Dosage: 25 MILLIGRAM, DAILY
     Route: 048
     Dates: start: 201901
  10. AZOSEMIDE [Concomitant]
     Active Substance: AZOSEMIDE
     Indication: Cardiac failure congestive
     Dosage: 30 MILLIGRAM, DAILY
     Route: 065
     Dates: start: 201901
  11. AZOSEMIDE [Concomitant]
     Active Substance: AZOSEMIDE
     Dosage: 60 MILLIGRAM, DAILY
     Route: 065

REACTIONS (5)
  - Cardiac failure [Unknown]
  - Altered state of consciousness [Unknown]
  - Hemiplegia [Unknown]
  - Cerebral infarction [Recovered/Resolved]
  - Drug interaction [Unknown]

NARRATIVE: CASE EVENT DATE: 20191001
